FAERS Safety Report 7421458-X (Version None)
Quarter: 2011Q2

REPORT INFORMATION
  Report Type: 
  Country: None (occurrence: None)
  Receive Date: 20110418
  Receipt Date: 20110411
  Transmission Date: 20111010
  Serious: Yes (Hospitalization, Other)
  Sender: FDA-Public Use
  Company Number: JP-CEPHALON-2011000671

PATIENT
  Sex: Female
  Weight: 51 kg

DRUGS (16)
  1. SULFAMETHOXAZOLE [Concomitant]
  2. FAMOTIDINE [Concomitant]
     Dates: start: 20110324, end: 20110328
  3. BENDAMUSTINE HCL [Suspect]
     Indication: B-CELL SMALL LYMPHOCYTIC LYMPHOMA
     Route: 042
     Dates: start: 20101216, end: 20101217
  4. DEXAMETHASONE [Concomitant]
     Dates: start: 20101216, end: 20101219
  5. MOXIFLOXACIN HYDROCHLORIDE [Concomitant]
     Dates: start: 20110211, end: 20110221
  6. TEPRENONE [Concomitant]
     Dates: start: 20110125, end: 20110130
  7. BENDAMUSTINE HCL [Suspect]
     Route: 042
     Dates: start: 20110201, end: 20110202
  8. DIPHENHYDRAMINE HCL [Concomitant]
     Dates: start: 20101216, end: 20101217
  9. BIFIDOBACTERIUM ANIMALIS [Concomitant]
  10. SODIUM BICARBONATE [Concomitant]
     Dates: start: 20101216, end: 20101217
  11. ACETAMINOPHEN [Concomitant]
     Dates: start: 20101216, end: 20101217
  12. RABEPRAZOLE SODIUM [Concomitant]
  13. GRANISETRON HCL [Concomitant]
     Dates: start: 20101216, end: 20101219
  14. MOSAPRIDE CITRATE [Concomitant]
     Dates: start: 20110121, end: 20110124
  15. ACICLOVIR [Concomitant]
  16. SULFONAMIDES [Concomitant]
     Dates: start: 20110120, end: 20110206

REACTIONS (6)
  - CEREBELLAR HAEMORRHAGE [None]
  - ANAEMIA [None]
  - PLATELET COUNT DECREASED [None]
  - FEBRILE NEUTROPENIA [None]
  - NEUTROPHIL COUNT DECREASED [None]
  - PYREXIA [None]
